FAERS Safety Report 18072025 (Version 2)
Quarter: 2022Q1

REPORT INFORMATION
  Report Type: Spontaneous
  Country: US (occurrence: US)
  Receive Date: 20200727
  Receipt Date: 20220308
  Transmission Date: 20220423
  Serious: No
  Sender: FDA-Public Use
  Company Number: US-PFIZER INC-2017056810

PATIENT
  Age: 62 Year
  Sex: Female
  Weight: 68.04 kg

DRUGS (4)
  1. PRISTIQ EXTENDED-RELEASE [Suspect]
     Active Substance: DESVENLAFAXINE SUCCINATE
     Indication: Depression
     Dosage: 50 MG, ONCE PER DAY AM (BEFORE NOON)
     Route: 048
     Dates: end: 202001
  2. ADDERALL [Concomitant]
     Active Substance: AMPHETAMINE ASPARTATE\AMPHETAMINE SULFATE\DEXTROAMPHETAMINE SACCHARATE\DEXTROAMPHETAMINE SULFATE
     Dosage: 30 MG, 3X/DAY (ADDERALL 30 MG (TDD(THREE TIMES DAILY) 90MG))
  3. AMBIEN [Concomitant]
     Active Substance: ZOLPIDEM TARTRATE
     Dosage: UNK (AMBIEN 5MG)
  4. LAMOTRIGINE [Concomitant]
     Active Substance: LAMOTRIGINE
     Indication: Bipolar disorder
     Dosage: UNK

REACTIONS (1)
  - Therapeutic response unexpected [Unknown]
